FAERS Safety Report 9366954 (Version 2)
Quarter: 2013Q4

REPORT INFORMATION
  Report Type: Spontaneous
  Country: US (occurrence: US)
  Receive Date: 20130625
  Receipt Date: 20131203
  Transmission Date: 20140711
  Serious: Yes (Life-Threatening, Hospitalization, Other)
  Sender: FDA-Public Use
  Company Number: US-BAYER-2013-075141

PATIENT
  Age: 39 Year
  Sex: Female
  Weight: 127.89 kg

DRUGS (3)
  1. MIRENA [Suspect]
     Indication: CONTRACEPTION
     Dosage: 20 MCG/24HR, CONT
     Route: 015
     Dates: start: 20061101, end: 20120307
  2. SYNTHROID [Concomitant]
     Indication: HYPOTHYROIDISM
     Dosage: 0.175 MG, UNK
     Dates: start: 1998
  3. AMBIEN [Concomitant]
     Dosage: 5 MG, UNK

REACTIONS (18)
  - Embedded device [None]
  - Injury [None]
  - Pelvic pain [None]
  - General physical health deterioration [None]
  - Chills [None]
  - Pyrexia [None]
  - Stress [None]
  - Anxiety [None]
  - Anhedonia [None]
  - Device misuse [None]
  - Infection [None]
  - Uterine injury [None]
  - Genital haemorrhage [None]
  - Ovarian cyst [None]
  - Scar [None]
  - Medical device discomfort [None]
  - Depression [None]
  - Device issue [None]
